FAERS Safety Report 15747556 (Version 1)
Quarter: 2018Q4

REPORT INFORMATION
  Report Type: Spontaneous
  Country: US (occurrence: US)
  Receive Date: 20181220
  Receipt Date: 20181220
  Transmission Date: 20190205
  Serious: No
  Sender: FDA-Public Use
  Company Number: US-CELGENEUS-USA-20181205514

PATIENT
  Age: 60 Year
  Sex: Female

DRUGS (8)
  1. OXYCODONE [Concomitant]
     Active Substance: OXYCODONE
     Indication: PAIN
     Dosage: 60 MILLIGRAM
     Route: 065
     Dates: start: 20181114, end: 20181120
  2. MONTELUKAST [Concomitant]
     Active Substance: MONTELUKAST SODIUM
     Indication: CHRONIC OBSTRUCTIVE PULMONARY DISEASE
     Dosage: 10 MILLIGRAM
     Route: 065
     Dates: start: 20180926
  3. DEXAMETHASONE. [Concomitant]
     Active Substance: DEXAMETHASONE
     Indication: RASH
     Dosage: 0.05PERCENT
     Route: 061
     Dates: start: 20180723
  4. FENTANYL. [Concomitant]
     Active Substance: FENTANYL
     Indication: POST LAMINECTOMY SYNDROME
  5. INCRUSE ELLIPTA [Concomitant]
     Active Substance: UMECLIDINIUM BROMIDE
     Indication: CHRONIC OBSTRUCTIVE PULMONARY DISEASE
     Dosage: 1 PUFF
     Route: 048
     Dates: start: 20181024
  6. OTEZLA [Suspect]
     Active Substance: APREMILAST
     Indication: PSORIATIC ARTHROPATHY
     Route: 048
     Dates: start: 20161101
  7. FENTANYL. [Concomitant]
     Active Substance: FENTANYL
     Indication: ARTHROPATHY
     Dosage: 200 MICROGRAM
     Route: 065
  8. OMEPRAZOLE. [Concomitant]
     Active Substance: OMEPRAZOLE
     Indication: GASTROOESOPHAGEAL REFLUX DISEASE
     Dosage: 20 MILLIGRAM
     Route: 065
     Dates: start: 20180926

REACTIONS (2)
  - Diarrhoea [Unknown]
  - Product dose omission [Unknown]

NARRATIVE: CASE EVENT DATE: 201811
